FAERS Safety Report 17807012 (Version 3)
Quarter: 2020Q4

REPORT INFORMATION
  Report Type: Report from Study
  Country: CA (occurrence: CA)
  Receive Date: 20200520
  Receipt Date: 20201014
  Transmission Date: 20210113
  Serious: Yes (Hospitalization, Other)
  Sender: FDA-Public Use
  Company Number: PHHY2012CA037226

PATIENT
  Age: 39 Year
  Sex: Female

DRUGS (4)
  1. SANDOSTATIN LAR DEPOT [Suspect]
     Active Substance: OCTREOTIDE ACETATE
     Dosage: 20 MG, QMO (ONCE A MONTH)
     Route: 030
     Dates: start: 20150929
  2. SANDOSTATIN LAR DEPOT [Suspect]
     Active Substance: OCTREOTIDE ACETATE
     Dosage: 20 MG, QMO (EVERY 4 WEEKS)
     Route: 030
     Dates: start: 20160330
  3. SANDOSTATIN LAR DEPOT [Suspect]
     Active Substance: OCTREOTIDE ACETATE
     Indication: ACROMEGALY
     Dosage: 20 MG, QMO (ONCE A MONTH)
     Route: 030
     Dates: start: 20120322
  4. SANDOSTATIN LAR DEPOT [Suspect]
     Active Substance: OCTREOTIDE ACETATE
     Dosage: 30 MG, QMO (ONCE A MONTH)
     Route: 030
     Dates: start: 20121102

REACTIONS (34)
  - Pharyngitis [Unknown]
  - Cholelithiasis [Unknown]
  - Bone hypertrophy [Unknown]
  - Pain [Recovering/Resolving]
  - Blood growth hormone increased [Unknown]
  - Blood pressure increased [Unknown]
  - Pyrexia [Recovered/Resolved]
  - Rhinorrhoea [Recovered/Resolved]
  - Illness [Unknown]
  - Dysuria [Unknown]
  - Nausea [Unknown]
  - Discomfort [Unknown]
  - Paraesthesia [Unknown]
  - Dizziness [Recovering/Resolving]
  - Asthenia [Unknown]
  - Pyrexia [Recovered/Resolved]
  - Pyrexia [Recovered/Resolved]
  - Nocturia [Unknown]
  - Nasal congestion [Not Recovered/Not Resolved]
  - Hypoaesthesia [Recovering/Resolving]
  - SARS-CoV-2 test negative [Unknown]
  - Flatulence [Recovered/Resolved]
  - Cough [Not Recovered/Not Resolved]
  - Headache [Recovered/Resolved]
  - Chromaturia [Unknown]
  - Chills [Unknown]
  - Pyrexia [Unknown]
  - Abdominal pain [Unknown]
  - Chills [Recovered/Resolved]
  - Body temperature decreased [Unknown]
  - Cystitis [Recovering/Resolving]
  - Productive cough [Unknown]
  - Pyrexia [Recovered/Resolved]
  - Oropharyngeal pain [Recovered/Resolved]

NARRATIVE: CASE EVENT DATE: 20151201
